FAERS Safety Report 10673564 (Version 1)
Quarter: 2014Q4

REPORT INFORMATION
  Report Type: Spontaneous
  Country: GB (occurrence: None)
  Receive Date: 20141222
  Receipt Date: 20141222
  Transmission Date: 20150529
  Serious: Yes (Death, Other)
  Sender: FDA-Public Use
  Company Number: FK201406344

PATIENT
  Age: 66 Year
  Sex: Female

DRUGS (11)
  1. XELODA [Suspect]
     Active Substance: CAPECITABINE
     Indication: COLORECTAL CANCER METASTATIC
     Route: 048
     Dates: start: 20090119, end: 20090221
  2. CEFUROXIME. [Concomitant]
     Active Substance: CEFUROXIME
  3. CIPROFLOXACIN. [Concomitant]
     Active Substance: CIPROFLOXACIN
  4. MORPHINE [Concomitant]
     Active Substance: MORPHINE
  5. AVASTIN [Suspect]
     Active Substance: BEVACIZUMAB
     Indication: METASTASES TO LUNG
  6. AVASTIN [Suspect]
     Active Substance: BEVACIZUMAB
     Indication: COLORECTAL CANCER METASTATIC
  7. HALOPERIDOL. [Concomitant]
     Active Substance: HALOPERIDOL
  8. AVASTIN [Suspect]
     Active Substance: BEVACIZUMAB
     Indication: METASTASES TO LIVER
  9. BUSCOPAN (HYOSCINE BUTYLBROMIDE) (HYOSCINE BUTYLBROMIDE) [Concomitant]
     Active Substance: BUTYLSCOPOLAMINE
  10. NEUPOGEN (FILGRASTIM) [Concomitant]
     Active Substance: FILGRASTIM
  11. OXALIPLATIN (MANUFACTURER UNKNOWN) (OXALIPLATIN) (OXALIPLATIN) [Suspect]
     Active Substance: OXALIPLATIN
     Indication: COLORECTAL CANCER METASTATIC
     Route: 042
     Dates: start: 20090119

REACTIONS (2)
  - Migraine [None]
  - Colitis ischaemic [None]

NARRATIVE: CASE EVENT DATE: 20090218
